FAERS Safety Report 5751631-8 (Version None)
Quarter: 2008Q2

REPORT INFORMATION
  Report Type: 
  Country: None (occurrence: None)
  Receive Date: 20080528
  Receipt Date: 20080520
  Transmission Date: 20081010
  Serious: Yes (Hospitalization, Other)
  Sender: FDA-Public Use
  Company Number: PHHY2008JP08484

PATIENT
  Age: 77 Year
  Sex: Male

DRUGS (4)
  1. DIOVAN [Suspect]
     Indication: HYPERTENSION
     Dosage: 80 MG DAILY
     Route: 048
     Dates: start: 20051214, end: 20080519
  2. DIOVAN [Suspect]
     Indication: HYPERLIPIDAEMIA
  3. ADALAT [Suspect]
     Dosage: 40 MG DAILY
     Route: 048
     Dates: start: 20060125, end: 20080519
  4. PLETAL [Suspect]
     Dosage: 200 MG DAILY
     Route: 048
     Dates: start: 20050628, end: 20080519

REACTIONS (8)
  - ASTHENIA [None]
  - BLOOD CREATINE PHOSPHOKINASE INCREASED [None]
  - CEREBRAL INFARCTION [None]
  - CHROMATURIA [None]
  - GAIT DISTURBANCE [None]
  - PYREXIA [None]
  - RHABDOMYOLYSIS [None]
  - SPEECH DISORDER [None]
